FAERS Safety Report 7396348-1 (Version None)
Quarter: 2011Q2

REPORT INFORMATION
  Report Type: 
  Country: None (occurrence: None)
  Receive Date: 20110406
  Receipt Date: 20110328
  Transmission Date: 20111010
  Serious: Yes (Other)
  Sender: FDA-Public Use
  Company Number: US-JNJFOC-20110312939

PATIENT
  Sex: Female

DRUGS (3)
  1. COGENTIN [Concomitant]
     Indication: EXTRAPYRAMIDAL DISORDER
     Route: 048
  2. INVEGA [Suspect]
     Indication: SCHIZOAFFECTIVE DISORDER
     Route: 048
  3. LEVOTHYROXINE [Concomitant]
     Indication: HYPOTHYROIDISM
     Route: 065

REACTIONS (9)
  - APHASIA [None]
  - MUSCLE CONTRACTURE [None]
  - HYPOKINESIA [None]
  - URINARY TRACT INFECTION [None]
  - INSOMNIA [None]
  - UNRESPONSIVE TO STIMULI [None]
  - BLOOD THYROID STIMULATING HORMONE INCREASED [None]
  - VITAMIN D DEFICIENCY [None]
  - SINUS HEADACHE [None]
